FAERS Safety Report 20563266 (Version 1)
Quarter: 2022Q1

REPORT INFORMATION
  Report Type: Spontaneous
  Country: US (occurrence: US)
  Receive Date: 20220308
  Receipt Date: 20220308
  Transmission Date: 20220423
  Serious: No
  Sender: FDA-Public Use
  Company Number: US-009507513-2203USA000808

PATIENT
  Sex: Male

DRUGS (1)
  1. PREVYMIS [Suspect]
     Active Substance: LETERMOVIR
     Dosage: UNK
     Route: 048
     Dates: end: 202111

REACTIONS (2)
  - Product administered to patient of inappropriate age [Unknown]
  - No adverse event [Unknown]
